FAERS Safety Report 20695620 (Version 1)
Quarter: 2022Q2

REPORT INFORMATION
  Report Type: Spontaneous
  Country: US (occurrence: None)
  Receive Date: 20220408
  Receipt Date: 20220408
  Transmission Date: 20220720
  Serious: Yes (Hospitalization)
  Sender: FDA-Public Use
  Company Number: None

PATIENT

DRUGS (2)
  1. XELODA [Suspect]
     Active Substance: CAPECITABINE
     Indication: Colon cancer
     Dosage: FREQUENCY : TWICE A DAY;?
     Route: 048
  2. DILANTIN [Concomitant]
     Active Substance: PHENYTOIN

REACTIONS (4)
  - Drug interaction [None]
  - Drug level increased [None]
  - Toxicity to various agents [None]
  - Vertigo [None]

NARRATIVE: CASE EVENT DATE: 20220321
